FAERS Safety Report 5659417-X (Version None)
Quarter: 2008Q1

REPORT INFORMATION
  Report Type: 
  Country: None (occurrence: None)
  Receive Date: 20080307
  Receipt Date: 20080307
  Transmission Date: 20080703
  Serious: No
  Sender: FDA-Public Use
  Company Number: None

PATIENT
  Age: 52 Year
  Sex: Female
  Weight: 56.6996 kg

DRUGS (3)
  1. ZETIA [Suspect]
     Indication: BLOOD CHOLESTEROL INCREASED
     Dosage: 10 MG DAILY ONCE  047
     Dates: start: 20070801, end: 20080101
  2. CRESTOR [Concomitant]
  3. OMEPRAZOLE [Concomitant]

REACTIONS (2)
  - ABDOMINAL PAIN UPPER [None]
  - FATIGUE [None]
